FAERS Safety Report 13263795 (Version 1)
Quarter: 2017Q1

REPORT INFORMATION
  Report Type: Spontaneous
  Country: US (occurrence: US)
  Receive Date: 20170223
  Receipt Date: 20170223
  Transmission Date: 20170428
  Serious: No
  Sender: FDA-Public Use
  Company Number: US-PFIZER INC-2015310654

PATIENT
  Age: 57 Year
  Sex: Female

DRUGS (8)
  1. DESONIDE. [Concomitant]
     Active Substance: DESONIDE
     Dosage: 1 DF, AS NEEDED (1 APPLICATION TO AFFECTED AREA EXTERNALLY TWICE A DAY PRN)
  2. ALENDRONATE [Concomitant]
     Active Substance: ALENDRONATE SODIUM
     Dosage: 35 MG, WEEKLY (ONE TAB ORALLY WEEKLY)
     Route: 048
  3. XALATAN [Concomitant]
     Active Substance: LATANOPROST
     Dosage: 1 GTT, 1X/DAY (1 DROP INTO AFFECTED EYE IN THE EVENING OPHTHALMIC ONCE A DAY)
     Route: 047
  4. TIMOLOL. [Concomitant]
     Active Substance: TIMOLOL
     Dosage: 1 GTT, 1X/DAY
     Route: 047
  5. NAPROSYN [Concomitant]
     Active Substance: NAPROXEN
     Dosage: 500 MG, AS NEEDED (1 TABLET AS NEEDED ORALLY TWICE A DAY)
     Route: 048
  6. VITAMIN C [Concomitant]
     Active Substance: ASCORBIC ACID
     Dosage: UNK
  7. LYRICA [Suspect]
     Active Substance: PREGABALIN
     Dosage: 75 MG, 3X/DAY (1 CAPSULE THREE TIMES A DAY)
     Route: 048
  8. ZETIA [Concomitant]
     Active Substance: EZETIMIBE
     Dosage: 10 MG, 1X/DAY
     Route: 048

REACTIONS (1)
  - Back pain [Unknown]
